FAERS Safety Report 19635060 (Version 2)
Quarter: 2022Q4

REPORT INFORMATION
  Report Type: Spontaneous
  Country: CA (occurrence: CA)
  Receive Date: 20210730
  Receipt Date: 20221114
  Transmission Date: 20230112
  Serious: Yes (Other)
  Sender: FDA-Public Use
  Company Number: CA-SA-SAC20210726001165

PATIENT
  Age: 56 Year
  Sex: Female

DRUGS (5)
  1. HYDROXYCHLOROQUINE [Suspect]
     Active Substance: HYDROXYCHLOROQUINE
     Indication: Product used for unknown indication
     Dosage: 400 MG, QD
     Dates: start: 2015
  2. ARAVA [Suspect]
     Active Substance: LEFLUNOMIDE
     Indication: Product used for unknown indication
     Dosage: 20 MG, QD
     Dates: start: 202105
  3. METHOTREXATE [Suspect]
     Active Substance: METHOTREXATE
     Indication: Product used for unknown indication
     Dosage: 20 MG, QW
     Dates: start: 2020
  4. DOXYCYCLINE [Suspect]
     Active Substance: DOXYCYCLINE
     Indication: Product used for unknown indication
     Dosage: 100 MG, BID
     Dates: start: 2018
  5. HUMIRA [Suspect]
     Active Substance: ADALIMUMAB
     Indication: Product used for unknown indication
     Dosage: 40 MG, QOW

REACTIONS (6)
  - Arthralgia [Unknown]
  - Drug intolerance [Unknown]
  - Joint swelling [Unknown]
  - Pulmonary toxicity [Unknown]
  - Alopecia [Unknown]
  - Therapeutic product effect decreased [Unknown]
